FAERS Safety Report 9681190 (Version 1)
Quarter: 2013Q4

REPORT INFORMATION
  Report Type: Spontaneous
  Country: GB (occurrence: GB)
  Receive Date: 20131111
  Receipt Date: 20131111
  Transmission Date: 20140711
  Serious: Yes (Hospitalization)
  Sender: FDA-Public Use
  Company Number: GB-NOVOPROD-391528

PATIENT
  Age: 32 Year
  Sex: Male
  Weight: 90.4 kg

DRUGS (4)
  1. LEVEMIR [Suspect]
     Indication: TYPE 2 DIABETES MELLITUS
     Dosage: 25 U, BID
     Route: 065
  2. LEVEMIR [Suspect]
     Dosage: 135 U, SINGLE
     Route: 065
     Dates: start: 20131029, end: 20131029
  3. NOVORAPID [Suspect]
     Indication: TYPE 2 DIABETES MELLITUS
     Dosage: 35 U, TID
     Route: 065
  4. NOVORAPID [Suspect]
     Dosage: 50 IU, SINGLE
     Route: 065
     Dates: start: 20131029, end: 20131029

REACTIONS (1)
  - Intentional overdose [Recovered/Resolved]
